FAERS Safety Report 6572984-7 (Version None)
Quarter: 2010Q1

REPORT INFORMATION
  Report Type: 
  Country: None (occurrence: None)
  Receive Date: 20100208
  Receipt Date: 20100203
  Transmission Date: 20100710
  Serious: Yes (Other)
  Sender: FDA-Public Use
  Company Number: US-RB-002105-10

PATIENT
  Age: 32 Year
  Sex: Female

DRUGS (1)
  1. DELSYM ADULT GRAPE 3 OZ [Suspect]
     Dosage: TOOK 2 TABLESPOONS OF PRODUCT
     Route: 048
     Dates: start: 20100128

REACTIONS (7)
  - ACCIDENTAL OVERDOSE [None]
  - COLD SWEAT [None]
  - DIZZINESS [None]
  - DYSPNOEA [None]
  - HYPOAESTHESIA FACIAL [None]
  - PHARYNGEAL OEDEMA [None]
  - SWOLLEN TONGUE [None]
